FAERS Safety Report 10238969 (Version 1)
Quarter: 2014Q2

REPORT INFORMATION
  Report Type: Spontaneous
  Country: US (occurrence: None)
  Receive Date: 20140613
  Receipt Date: 20140613
  Transmission Date: 20141212
  Serious: No
  Sender: FDA-Public Use
  Company Number: None

PATIENT
  Age: 62 Year
  Sex: Male
  Weight: 86.18 kg

DRUGS (2)
  1. VENLAFAXINE EFFEXOR XR 225 MG [Suspect]
     Indication: DEPRESSION
     Dosage: 150 + 75 MG ( 2 PILLS) ONCE DAILY TAKEN BY MOUTH
     Route: 048
     Dates: start: 20110501, end: 20140426
  2. VENLAFAXINE EFFEXOR XR 225 MG [Suspect]
     Indication: DYSTHYMIC DISORDER
     Dosage: 150 + 75 MG ( 2 PILLS) ONCE DAILY TAKEN BY MOUTH
     Route: 048
     Dates: start: 20110501, end: 20140426

REACTIONS (2)
  - Hypertension [None]
  - Blood pressure inadequately controlled [None]
